FAERS Safety Report 10229608 (Version 1)
Quarter: 2014Q2

REPORT INFORMATION
  Report Type: Report from Study
  Country: US (occurrence: US)
  Receive Date: 20140611
  Receipt Date: 20140611
  Transmission Date: 20141212
  Serious: Yes (Life-Threatening, Hospitalization)
  Sender: FDA-Public Use
  Company Number: US-009507513-1406USA004755

PATIENT
  Age: 53 Year
  Sex: Male
  Weight: 65.2 kg

DRUGS (8)
  1. VORINOSTAT [Suspect]
     Indication: NON-HODGKIN^S LYMPHOMA
     Dosage: 300 MG PO ON DAYS 1-5, CYCLE 1, CYCLE-21 DAYS
     Route: 048
     Dates: start: 20140314
  2. VORINOSTAT [Suspect]
     Dosage: PO ON DAYS 1-5, CYCLE4, CYCLE-21 DAYS
     Route: 048
     Dates: start: 20140516, end: 20140520
  3. RITUXIMAB [Suspect]
     Indication: NON-HODGKIN^S LYMPHOMA
     Dosage: 375 MG/M2 IV ON DAY 1, CYCLE 1, CYCLE-21 DAYS
     Route: 042
     Dates: start: 20140314
  4. ETOPOSIDE [Suspect]
     Indication: NON-HODGKIN^S LYMPHOMA
     Dosage: 50 MG/M2/DAY CONTINUOUS IV INFUSION OVER 96 HOUR ON DAYS 1-4, CYCLE1, CYCLE-21 DAYS
     Route: 042
     Dates: start: 20140314
  5. DOXORUBICIN [Suspect]
     Indication: NON-HODGKIN^S LYMPHOMA
     Dosage: 10 MG/M2/DAY CONTINUOUS IV INFUSION OVER 96 HOUR ON DAYS 1-4, CYCYLE1, CYCLE-21 DAYS
     Route: 042
     Dates: start: 20140314
  6. VINCRISTINE SULFATE [Suspect]
     Indication: NON-HODGKIN^S LYMPHOMA
     Dosage: 0.4 MG/M2/DAY CONTINUOUS IV INFUSION OVER 96 HOUR ON DAYS 1-4, CYCLE1, CYCLE-21 DAYS
     Route: 042
     Dates: start: 20140314
  7. PREDNISOLONE [Suspect]
     Indication: NON-HODGKIN^S LYMPHOMA
     Dosage: 60 MG/M2/DAY PO ON DAYS 1-5, CYCLE1, CYCLE-21 DAYS
     Route: 048
     Dates: start: 20140314
  8. CYCLOPHOSPHAMIDE [Suspect]
     Indication: NON-HODGKIN^S LYMPHOMA
     Dosage: 375 MG/M2- 750MG/M2 IV OVER 1 HOUR ON DAY 5, CYCLE1, CYCLE-21 DAYS
     Route: 042
     Dates: start: 20140314

REACTIONS (2)
  - Febrile neutropenia [Recovered/Resolved]
  - White blood cell count decreased [Recovered/Resolved]
